FAERS Safety Report 7578229-3 (Version None)
Quarter: 2011Q2

REPORT INFORMATION
  Report Type: 
  Country: None (occurrence: None)
  Receive Date: 20110628
  Receipt Date: 20110621
  Transmission Date: 20111010
  Serious: Yes (Other)
  Sender: FDA-Public Use
  Company Number: B0728285A

PATIENT
  Sex: Female

DRUGS (3)
  1. PAXIL [Suspect]
     Dosage: 30MG UNKNOWN
     Route: 048
  2. PAXIL [Suspect]
     Route: 048
  3. PAXIL [Suspect]
     Dosage: 20MG UNKNOWN
     Route: 048

REACTIONS (3)
  - DRUG WITHDRAWAL SYNDROME [None]
  - DYSKINESIA [None]
  - AGGRESSION [None]
